FAERS Safety Report 4300672-6 (Version None)
Quarter: 2004Q1

REPORT INFORMATION
  Report Type: 
  Country: None (occurrence: None)
  Receive Date: 20040220
  Receipt Date: 20040212
  Transmission Date: 20041129
  Serious: Yes (Hospitalization)
  Sender: FDA-Public Use
  Company Number: FR-BRISTOL-MYERS SQUIBB COMPANY-12504890

PATIENT
  Age: 70 Year
  Sex: Female

DRUGS (1)
  1. FOZITEC TABS [Suspect]
     Indication: ESSENTIAL HYPERTENSION
     Route: 048
     Dates: end: 20040105

REACTIONS (12)
  - ANOREXIA [None]
  - CARDIAC ARREST [None]
  - CONVULSION [None]
  - CYANOSIS [None]
  - HAEMODIALYSIS [None]
  - HYPERPHOSPHATAEMIA [None]
  - HYPONATRAEMIA [None]
  - HYPOTHERMIA [None]
  - METABOLIC ACIDOSIS [None]
  - RENAL FAILURE ACUTE [None]
  - SEPTIC SHOCK [None]
  - URINARY TRACT INFECTION [None]
